FAERS Safety Report 17401484 (Version 1)
Quarter: 2020Q1

REPORT INFORMATION
  Report Type: Spontaneous
  Country: DE (occurrence: DE)
  Receive Date: 20200211
  Receipt Date: 20200211
  Transmission Date: 20200409
  Serious: Yes (Hospitalization)
  Sender: FDA-Public Use
  Company Number: NVSC2020DE033868

PATIENT
  Age: 53 Year
  Sex: Male
  Weight: 71 kg

DRUGS (4)
  1. CARBOPLATIN. [Suspect]
     Active Substance: CARBOPLATIN
     Indication: NON-SMALL CELL LUNG CANCER
     Dosage: 1 OT, CYCLIC (5 MG/MIN*ML WAS ADMINISTERED PRIOR TO AE)
     Route: 042
     Dates: start: 20190926
  2. BEVACIZUMAB. [Suspect]
     Active Substance: BEVACIZUMAB
     Indication: NON-SMALL CELL LUNG CANCER
     Dosage: 15 MG/KG, CYCLIC ((15 MG/KG) WAS ADMINISTERED PRIOR TO AE)
     Route: 042
     Dates: start: 20190926
  3. PACLITAXEL. [Suspect]
     Active Substance: PACLITAXEL
     Indication: NON-SMALL CELL LUNG CANCER
     Dosage: 1 OT, CYCLIC ((175 MG/M^2) WAS ADMINISTERED PRIOR TO AE )
     Route: 042
     Dates: start: 20190926
  4. ATEZOLIZUMAB. [Suspect]
     Active Substance: ATEZOLIZUMAB
     Indication: NON-SMALL CELL LUNG CANCER
     Dosage: 1200 MG, CYCLIC ((1200 MG) WAS ADMINISTERED PRIOR TO AE)
     Route: 042
     Dates: start: 20190926

REACTIONS (1)
  - Pneumonitis [Recovered/Resolved]

NARRATIVE: CASE EVENT DATE: 20191007
